FAERS Safety Report 14054805 (Version 5)
Quarter: 2017Q4

REPORT INFORMATION
  Report Type: Spontaneous
  Country: JP (occurrence: JP)
  Receive Date: 20171006
  Receipt Date: 20171225
  Transmission Date: 20180321
  Serious: Yes (Life-Threatening, Other)
  Sender: FDA-Public Use
  Company Number: JP-UCBSA-2017038683

PATIENT
  Age: 37 Year
  Sex: Female

DRUGS (15)
  1. E KEPPRA [Suspect]
     Active Substance: LEVETIRACETAM
     Dosage: 2000 MG DAILY DOSE
     Route: 048
     Dates: start: 20170823, end: 20170916
  2. TEGRETOL [Suspect]
     Active Substance: CARBAMAZEPINE
     Indication: SEIZURE
     Dosage: 400 MG DAILY
     Route: 048
     Dates: start: 20170828, end: 20170922
  3. VIMPAT [Suspect]
     Active Substance: LACOSAMIDE
     Indication: EPILEPSY
     Dosage: 100 MG DAILY
     Route: 048
     Dates: start: 20170922
  4. PHENYTOIN. [Concomitant]
     Active Substance: PHENYTOIN
  5. LOXONIN [Suspect]
     Active Substance: LOXOPROFEN SODIUM
     Indication: PRODUCT USED FOR UNKNOWN INDICATION
     Dosage: UNK
     Route: 048
     Dates: start: 20170918
  6. FOSPHENYTOIN SODIUM. [Concomitant]
     Active Substance: FOSPHENYTOIN SODIUM
     Indication: SEIZURE
     Dosage: UNK
  7. PROPOFOL. [Concomitant]
     Active Substance: PROPOFOL
     Indication: SEIZURE
  8. AMLODIPINE [Concomitant]
     Active Substance: AMLODIPINE BESYLATE
     Indication: PRODUCT USED FOR UNKNOWN INDICATION
     Dosage: 5 MG DAILY DOSE
     Route: 048
     Dates: start: 20170901, end: 20170921
  9. E KEPPRA [Suspect]
     Active Substance: LEVETIRACETAM
     Dosage: 3000 MG DAILY DOSE
     Route: 048
     Dates: start: 20170917
  10. E KEPPRA [Suspect]
     Active Substance: LEVETIRACETAM
     Indication: EPILEPSY
     Dosage: 1000 MG DAILY DOSE
     Route: 048
     Dates: start: 20170819, end: 20170823
  11. DIAZEPAM. [Concomitant]
     Active Substance: DIAZEPAM
     Indication: SEIZURE
     Dosage: UNK
  12. MIDAZOLAM [Concomitant]
     Active Substance: MIDAZOLAM HYDROCHLORIDE
     Indication: SEIZURE
  13. E KEPPRA [Suspect]
     Active Substance: LEVETIRACETAM
     Indication: EPILEPSY
     Dosage: 3000 MG DAILY
     Route: 048
     Dates: start: 2017
  14. NEXIUM [Suspect]
     Active Substance: ESOMEPRAZOLE MAGNESIUM
     Indication: PRODUCT USED FOR UNKNOWN INDICATION
     Dosage: UNK
     Route: 048
     Dates: start: 20170902
  15. BIOFERMIN R [Suspect]
     Active Substance: BACILLUS SUBTILIS\LACTOBACILLUS ACIDOPHILUS\STREPTOCOCCUS FAECAIS
     Indication: PRODUCT USED FOR UNKNOWN INDICATION
     Dosage: 3 G DAILY
     Route: 048
     Dates: start: 20170824, end: 20171005

REACTIONS (2)
  - Neuroleptic malignant syndrome [Recovered/Resolved]
  - Status epilepticus [Unknown]

NARRATIVE: CASE EVENT DATE: 20170828
